FAERS Safety Report 26208036 (Version 1)
Quarter: 2025Q4

REPORT INFORMATION
  Report Type: Spontaneous
  Country: US (occurrence: None)
  Receive Date: 20251226
  Receipt Date: 20251226
  Transmission Date: 20260118
  Serious: Yes (Hospitalization, Other)
  Sender: FDA-CTU
  Company Number: None

PATIENT
  Age: 76 Year
  Sex: Female

DRUGS (1)
  1. DYSPORT [Suspect]
     Active Substance: ABOBOTULINUMTOXINA
     Indication: Blepharospasm
     Dosage: OTHER FREQUENCY : Q12 WEEKS;
     Route: 030
     Dates: end: 20251226

REACTIONS (3)
  - Blindness [None]
  - Job dissatisfaction [None]
  - Facial paralysis [None]

NARRATIVE: CASE EVENT DATE: 20251201
